FAERS Safety Report 7023908-X (Version None)
Quarter: 2010Q3

REPORT INFORMATION
  Report Type: 
  Country: None (occurrence: None)
  Receive Date: 20100916
  Receipt Date: 20090924
  Transmission Date: 20110219
  Serious: Yes (Other)
  Sender: FDA-Public Use
  Company Number: 163-20484-09092061 (0)

PATIENT

DRUGS (3)
  1. INNOHEP [Suspect]
     Indication: THROMBOSIS PROPHYLAXIS
     Dosage: 4500 IU (4500 IU,1 IN 1 D) , SUBCUTANEOUS; 19 DAYS AFTER  BIOPSY
     Route: 058
  2. IRINOTECAN HCL [Concomitant]
  3. TEMOZOLOMIDE [Concomitant]

REACTIONS (1)
  - HAEMORRHAGE INTRACRANIAL [None]
